FAERS Safety Report 23456996 (Version 1)
Quarter: 2024Q1

REPORT INFORMATION
  Report Type: Spontaneous
  Country: US (occurrence: None)
  Receive Date: 20240129
  Receipt Date: 20240129
  Transmission Date: 20240410
  Serious: Yes (Other)
  Sender: FDA-Public Use
  Company Number: None

PATIENT
  Age: 40 Year
  Sex: Female

DRUGS (1)
  1. SUBLOCADE [Suspect]
     Active Substance: BUPRENORPHINE
     Indication: Product used for unknown indication
     Dosage: OTHER QUANTITY : 1 INJECTION(S);?OTHER FREQUENCY : 30 DAYS;?
     Route: 030
     Dates: start: 20240118

REACTIONS (3)
  - Product quality issue [None]
  - Tooth loss [None]
  - Product taste abnormal [None]

NARRATIVE: CASE EVENT DATE: 20240118
